FAERS Safety Report 21485086 (Version 1)
Quarter: 2022Q4

REPORT INFORMATION
  Report Type: Report from Study
  Country: US (occurrence: US)
  Receive Date: 20221020
  Receipt Date: 20221020
  Transmission Date: 20230112
  Serious: No
  Sender: FDA-Public Use
  Company Number: US-ABBVIE-4139111

PATIENT
  Age: 69 Year
  Sex: Female

DRUGS (7)
  1. IMBRUVICA [Suspect]
     Active Substance: IBRUTINIB
     Indication: Chronic lymphocytic leukaemia
     Route: 048
     Dates: start: 20220924
  2. Hyzaar Oral Tablet 100-25 MG [Concomitant]
     Indication: Product used for unknown indication
     Route: 065
  3. Zofran Oral Tablet 8 MG [Concomitant]
     Indication: Product used for unknown indication
     Route: 065
  4. Amlodipine Besylate Oral Tablet 10 [Concomitant]
     Indication: Product used for unknown indication
     Route: 065
  5. Prochlorperazine Maleate Oral Tablet [Concomitant]
     Indication: Product used for unknown indication
     Route: 065
  6. Allopurinol Oral Tablet 300 MG [Concomitant]
     Indication: Product used for unknown indication
     Route: 065
  7. Atorvastatin Calcium Oral Tablet 20 [Concomitant]
     Indication: Product used for unknown indication
     Route: 065

REACTIONS (2)
  - Diarrhoea [Recovering/Resolving]
  - Hypertension [Unknown]

NARRATIVE: CASE EVENT DATE: 20220924
